FAERS Safety Report 8144348-6 (Version None)
Quarter: 2012Q1

REPORT INFORMATION
  Report Type: 
  Country: None (occurrence: None)
  Receive Date: 20120103
  Receipt Date: 20110927
  Transmission Date: 20120608
  Serious: No
  Sender: FDA-Public Use
  Company Number: AE-2011-000589

PATIENT
  Age: 55 Year
  Sex: Female
  Weight: 91.173 kg

DRUGS (3)
  1. PEG-INTRON [Concomitant]
  2. RIBAPAK (RIBAVIRIN) [Concomitant]
  3. INCIVEK [Suspect]
     Dosage: 1125 MG (375 MG, 3 IN 1 D)
     Dates: start: 20110722

REACTIONS (11)
  - PYREXIA [None]
  - BACK PAIN [None]
  - PANIC ATTACK [None]
  - HYPERTENSION [None]
  - VOMITING [None]
  - CHILLS [None]
  - TACHYCARDIA [None]
  - DYSPNOEA [None]
  - ABDOMINAL PAIN UPPER [None]
  - DIARRHOEA [None]
  - CHEST DISCOMFORT [None]
